FAERS Safety Report 5011869-4 (Version None)
Quarter: 2006Q2

REPORT INFORMATION
  Report Type: 
  Country: None (occurrence: None)
  Receive Date: 20060526
  Receipt Date: 20060517
  Transmission Date: 20061013
  Serious: Yes (Hospitalization)
  Sender: FDA-Public Use
  Company Number: CH-SANOFI-SYNTHELABO-A01200603763

PATIENT
  Age: 75 Year
  Sex: Male

DRUGS (2)
  1. SINTROM [Suspect]
     Indication: ISCHAEMIA
     Route: 048
  2. PLAVIX [Suspect]
     Indication: ANGIOPATHY
     Route: 048

REACTIONS (2)
  - EPISTAXIS [None]
  - PROTHROMBIN TIME PROLONGED [None]
